FAERS Safety Report 6659909-0 (Version None)
Quarter: 2010Q1

REPORT INFORMATION
  Report Type: 
  Country: None (occurrence: None)
  Receive Date: 20100330
  Receipt Date: 20100330
  Transmission Date: 20100710
  Serious: No
  Sender: FDA-Public Use
  Company Number: None

PATIENT
  Age: 57 Year
  Sex: Male
  Weight: 104.3273 kg

DRUGS (1)
  1. CIPRO [Suspect]
     Indication: INFECTION PROPHYLAXIS
     Dosage: (TWICE A DAY)
     Dates: start: 20100320, end: 20100323

REACTIONS (1)
  - TENDON RUPTURE [None]
